FAERS Safety Report 10096297 (Version 1)
Quarter: 2014Q2

REPORT INFORMATION
  Report Type: Spontaneous
  Country: US (occurrence: None)
  Receive Date: 20140411
  Receipt Date: 20140411
  Transmission Date: 20141212
  Serious: Yes (Hospitalization)
  Sender: FDA-Public Use
  Company Number: 2013-001836

PATIENT
  Age: 43 Year
  Sex: Female

DRUGS (7)
  1. LOESTRIN 24 FE (NORETHINDONE ACETATE,ETHINYLESTRADIOL, FERROUS FUMARATE) TABLET,1000/20MG [Suspect]
     Indication: CONTRACEPTION
     Route: 048
  2. ALL OTHER THERAPEUTIC PRODUCTS [Concomitant]
  3. VITAMIN D (COLECALCIFEROL) [Concomitant]
  4. ALL OTHER THERAPEUTIC PRODUCTS [Concomitant]
  5. ASPIRIN  (ACETYLSALICYLIC ACID) [Concomitant]
  6. GLUCOSAMINE + CHONDROITIN (CHONDROITIN SULFATE , GLUCOSAMINE) [Concomitant]
  7. PRILOSEC  (OMEPRAZOLE) [Concomitant]

REACTIONS (8)
  - Subclavian vein thrombosis [None]
  - Thoracic outlet syndrome [None]
  - Local swelling [None]
  - Skin discolouration [None]
  - Pain in extremity [None]
  - Hypoaesthesia [None]
  - Paraesthesia [None]
  - Nerve injury [None]
